FAERS Safety Report 5070712-8 (Version None)
Quarter: 2006Q3

REPORT INFORMATION
  Report Type: 
  Country: None (occurrence: None)
  Receive Date: 20060804
  Receipt Date: 20051012
  Transmission Date: 20061208
  Serious: No
  Sender: FDA-Public Use
  Company Number: US-GLAXOSMITHKLINE-A0577928A

PATIENT
  Age: 35 Year
  Sex: Male

DRUGS (3)
  1. NICORETTE (MINT) [Suspect]
  2. NICORETTE [Suspect]
  3. NICORETTE (MINT) [Suspect]

REACTIONS (5)
  - DIARRHOEA [None]
  - DRUG ABUSER [None]
  - FLATULENCE [None]
  - MALAISE [None]
  - NAUSEA [None]
